FAERS Safety Report 4867120-9 (Version None)
Quarter: 2005Q4

REPORT INFORMATION
  Report Type: 
  Country: None (occurrence: None)
  Receive Date: 20051222
  Receipt Date: 20051212
  Transmission Date: 20060501
  Serious: Yes (Other)
  Sender: FDA-Public Use
  Company Number: FR-2005-026562

PATIENT
  Age: 67 Year
  Sex: Male

DRUGS (6)
  1. BETASERON [Suspect]
     Indication: PROGRESSIVE MULTIPLE SCLEROSIS
     Dosage: 8 MIU, 3X/WEEK, SUBCUTANEOUS
     Route: 058
     Dates: start: 20000101, end: 20051111
  2. DIAMICRON (GLICLAZIDE) [Concomitant]
  3. APROVEL (IRBESARTAN) [Concomitant]
  4. METFORMINE ^MERCK^ (METFORMIN HYDROCHLORIDE) [Concomitant]
  5. ZOXAN-TZ (TINIDAZOLE) [Concomitant]
  6. FENOFIBRATE [Concomitant]

REACTIONS (3)
  - HAEMORRHAGE SUBCUTANEOUS [None]
  - OEDEMA PERIPHERAL [None]
  - SKIN EXFOLIATION [None]
